FAERS Safety Report 4391146-5 (Version None)
Quarter: 2004Q3

REPORT INFORMATION
  Report Type: 
  Country: None (occurrence: None)
  Receive Date: 20040707
  Receipt Date: 20040513
  Transmission Date: 20050211
  Serious: Yes (Hospitalization, Other)
  Sender: FDA-Public Use
  Company Number: DE-BRISTOL-MYERS SQUIBB COMPANY-12585527

PATIENT
  Age: 57 Year
  Sex: Female
  Weight: 77 kg

DRUGS (6)
  1. IFOSFAMIDE [Suspect]
     Indication: SARCOMA
     Dosage: 3 G/M2
     Route: 042
     Dates: start: 20040405, end: 20040405
  2. CAELYX [Suspect]
     Indication: SARCOMA
     Dosage: 30 MG/M2
     Route: 042
     Dates: start: 20040403, end: 20040403
  3. ENOXAPARIN SODIUM [Concomitant]
     Indication: THROMBOSIS PROPHYLAXIS
     Dosage: ^40^
     Route: 058
  4. DURAGESIC [Concomitant]
     Indication: PAIN
     Route: 058
  5. SAROTEN [Concomitant]
     Indication: PAIN
     Dosage: ^75^
     Route: 048
     Dates: end: 20040404
  6. NEURONTIN [Concomitant]
     Indication: PAIN
     Dosage: ^300 X 3^
     Route: 048
     Dates: end: 20040404

REACTIONS (1)
  - TOXIC INDUCED ENCEPHALOPATHY [None]
